FAERS Safety Report 5007956-7 (Version None)
Quarter: 2006Q2

REPORT INFORMATION
  Report Type: 
  Country: None (occurrence: None)
  Receive Date: 20060517
  Receipt Date: 20030508
  Transmission Date: 20061013
  Serious: Yes (Other)
  Sender: FDA-Public Use
  Company Number: 2006061637

PATIENT
  Sex: Female

DRUGS (1)
  1. OGEN [Suspect]
     Indication: ILL-DEFINED DISORDER
     Dosage: 1.25 MG (1.25 MG, UNKNOWN), ORAL
     Route: 048

REACTIONS (3)
  - FEELING ABNORMAL [None]
  - PREMENSTRUAL SYNDROME [None]
  - SUICIDAL IDEATION [None]
